FAERS Safety Report 17138535 (Version 1)
Quarter: 2019Q4

REPORT INFORMATION
  Report Type: Report from Study
  Country: JP (occurrence: JP)
  Receive Date: 20191211
  Receipt Date: 20191211
  Transmission Date: 20200122
  Serious: Yes (Other)
  Sender: FDA-Public Use
  Company Number: JP-TEVA-2019-JP-1149582

PATIENT
  Age: 48 Year
  Sex: Male

DRUGS (4)
  1. METHOTREXATE. [Suspect]
     Active Substance: METHOTREXATE
     Indication: CENTRAL NERVOUS SYSTEM LYMPHOMA
     Dosage: 5 G/M2 (HIGH-DOSE) OVER 3H BIWEEKLY FOR 5 CYCLES
     Route: 042
  2. NORMAL SALINE [Suspect]
     Active Substance: SODIUM CHLORIDE
     Indication: CENTRAL NERVOUS SYSTEM LYMPHOMA
     Dosage: INJECTED VIA THE SUBCUTANEOUS PORT INTO THE LATERAL VENTRICLE OVER A PERIOD OF 120H BIWEEKLY FOR...
     Route: 050
  3. PREDNISOLONE. [Suspect]
     Active Substance: PREDNISOLONE
     Indication: CENTRAL NERVOUS SYSTEM LYMPHOMA
     Dosage: INJECTED VIA THE SUBCUTANEOUS PORT INTO THE LATERAL VENTRICLE OVER A PERIOD OF 120H BIWEEKLY FOR ...
     Route: 050
  4. METHOTREXATE. [Suspect]
     Active Substance: METHOTREXATE
     Indication: CENTRAL NERVOUS SYSTEM LYMPHOMA
     Dosage: INJECTED VIA THE SUBCUTANEOUS PORT INTO THE LATERAL VENTRICLE OVER A PERIOD OF 120H BIWEEKLY FOR ...
     Route: 050

REACTIONS (1)
  - Meningitis bacterial [Unknown]
